FAERS Safety Report 9196944 (Version 2)
Quarter: 2013Q1

REPORT INFORMATION
  Report Type: Spontaneous
  Country: JP (occurrence: JP)
  Receive Date: 20130328
  Receipt Date: 20130328
  Transmission Date: 20140127
  Serious: Yes (Hospitalization)
  Sender: FDA-Public Use
  Company Number: JP-BAYER-2013-023220

PATIENT
  Age: 24 Year
  Sex: Female
  Weight: 61 kg

DRUGS (7)
  1. AVELOX [Suspect]
     Indication: NASOPHARYNGITIS
     Dosage: 400 MG, BID
     Route: 048
     Dates: start: 20130213, end: 20130214
  2. MUCOSTA [Concomitant]
     Route: 048
  3. OTHER COLD COMBINATION PREPARATIONS [Suspect]
     Dosage: UNK
     Route: 048
  4. LOXONIN [Suspect]
     Indication: NASOPHARYNGITIS
     Dosage: 1 DF, 5ID
     Route: 048
     Dates: start: 20130213, end: 20130214
  5. TEPRENONE [Suspect]
     Indication: NASOPHARYNGITIS
     Dosage: 1 DF, 5ID
     Route: 048
     Dates: start: 20130213, end: 20130214
  6. NAUZELIN [Suspect]
     Indication: NASOPHARYNGITIS
     Dosage: 1 DF, 5ID
     Route: 048
     Dates: start: 20130213, end: 20130214
  7. OTHER COLD COMBINATION PREPARATIONS [Suspect]
     Dosage: UNK
     Route: 048

REACTIONS (6)
  - Liver disorder [Recovered/Resolved]
  - Splenomegaly [Recovered/Resolved]
  - Polyp [None]
  - Aspartate aminotransferase increased [None]
  - Alanine aminotransferase increased [None]
  - Blood lactate dehydrogenase increased [None]
